FAERS Safety Report 16469397 (Version 1)
Quarter: 2019Q3

REPORT INFORMATION
  Report Type: Spontaneous
  Country: US (occurrence: US)
  Receive Date: 20190621
  Receipt Date: 20190621
  Transmission Date: 20191004
  Serious: Yes (Other)
  Sender: FDA-Public Use
  Company Number: None

PATIENT
  Age: 44 Year
  Sex: Female
  Weight: 71.9 kg

DRUGS (14)
  1. CYANOCOBALAMIN. [Concomitant]
     Active Substance: CYANOCOBALAMIN
  2. TRETINOIN TOPICAL [Concomitant]
     Active Substance: TRETINOIN
  3. TUMERIC [Concomitant]
     Active Substance: HERBALS\TURMERIC
  4. LORATADINE. [Concomitant]
     Active Substance: LORATADINE
  5. CONJUGATED ESTROGENS TOPICAL [Concomitant]
  6. DEXAMETHASONE. [Concomitant]
     Active Substance: DEXAMETHASONE
  7. METRONIDAZOLE TOPICAL [Concomitant]
     Active Substance: METRONIDAZOLE
  8. KADCYLA [Suspect]
     Active Substance: ADO-TRASTUZUMAB EMTANSINE
     Indication: BREAST CANCER
     Dosage: ?          OTHER FREQUENCY:ONCE;?
     Route: 042
     Dates: start: 20190412, end: 20190618
  9. VALACYCLOVIR [Concomitant]
     Active Substance: VALACYCLOVIR HYDROCHLORIDE
  10. CHOLECALCIFEROL [Concomitant]
     Active Substance: CHOLECALCIFEROL
  11. FLUOROMETHALONE OPHTHALMIC [Concomitant]
  12. HYDROCORTISONE. [Concomitant]
     Active Substance: HYDROCORTISONE
  13. BETAMETHASONE TOPICAL [Concomitant]
  14. DOXYCYCLINE. [Concomitant]
     Active Substance: DOXYCYCLINE

REACTIONS (3)
  - Palpitations [None]
  - Infusion related reaction [None]
  - Chest discomfort [None]

NARRATIVE: CASE EVENT DATE: 20190618
